FAERS Safety Report 15028633 (Version 1)
Quarter: 2018Q2

REPORT INFORMATION
  Report Type: Spontaneous
  Country: MX (occurrence: MX)
  Receive Date: 20180619
  Receipt Date: 20180619
  Transmission Date: 20180711
  Serious: Yes (Disabling)
  Sender: FDA-Public Use
  Company Number: MX-009507513-1805MEX005094

PATIENT
  Age: 52 Year
  Sex: Male
  Weight: 81 kg

DRUGS (5)
  1. RIBAVIRIN. [Concomitant]
     Active Substance: RIBAVIRIN
     Dosage: 1200 MG DAILY
     Route: 048
  2. DIAZEPAM. [Concomitant]
     Active Substance: DIAZEPAM
     Indication: ANXIOLYTIC THERAPY
     Dosage: 1 ORAL TABLET EVERY NIGHT
     Route: 048
     Dates: start: 2013, end: 20180420
  3. DIAZEPAM. [Concomitant]
     Active Substance: DIAZEPAM
     Indication: SEDATION
     Dosage: 1/4 TABLET
     Route: 048
  4. ZEPATIER [Suspect]
     Active Substance: ELBASVIR\GRAZOPREVIR
     Indication: CHRONIC HEPATITIS C
     Dosage: 1 ORAL TABLET DAILY BY 16 WEEKS
     Route: 048
     Dates: start: 20180420
  5. ZEPATIER [Suspect]
     Active Substance: ELBASVIR\GRAZOPREVIR
     Indication: ANTIVIRAL TREATMENT

REACTIONS (3)
  - Anxiety [Recovering/Resolving]
  - Panic attack [Recovering/Resolving]
  - Insomnia [Unknown]

NARRATIVE: CASE EVENT DATE: 2018
